FAERS Safety Report 9227951 (Version 2)
Quarter: 2013Q2

REPORT INFORMATION
  Report Type: Spontaneous
  Country: ES (occurrence: ES)
  Receive Date: 20130412
  Receipt Date: 20130507
  Transmission Date: 20140414
  Serious: Yes (Hospitalization, Other)
  Sender: FDA-Public Use
  Company Number: ES-CELGENEUS-144-20785-13040419

PATIENT
  Age: 56 Year
  Sex: Male

DRUGS (7)
  1. THALIDOMIDE [Suspect]
     Indication: PLASMA CELL MYELOMA
     Route: 048
     Dates: start: 201104
  2. REVLIMID [Suspect]
     Indication: PLASMA CELL MYELOMA
     Dosage: 5 MILLIGRAM
     Route: 048
     Dates: start: 2011
  3. DEXAMETHASONE [Concomitant]
     Indication: PLASMA CELL MYELOMA
     Route: 065
  4. DEXAMETHASONE [Concomitant]
     Route: 065
  5. DEXAMETHASONE [Concomitant]
     Route: 065
     Dates: start: 201104
  6. BORTEZOMIB [Concomitant]
     Indication: PLASMA CELL MYELOMA
     Route: 065
     Dates: start: 201104
  7. BORTEZOMIB [Concomitant]
     Route: 065
     Dates: start: 201104

REACTIONS (4)
  - Renal failure [Unknown]
  - Pneumonia [Unknown]
  - Anaemia [Unknown]
  - No therapeutic response [Unknown]
